FAERS Safety Report 10037813 (Version 1)
Quarter: 2014Q1

REPORT INFORMATION
  Report Type: Spontaneous
  Country: ES (occurrence: ES)
  Receive Date: 20140326
  Receipt Date: 20140326
  Transmission Date: 20141002
  Serious: Yes (Other)
  Sender: FDA-Public Use
  Company Number: ES-SA-2014SA035758

PATIENT
  Age: 40 Year
  Sex: Male

DRUGS (1)
  1. BCG FOR IMMUNOTHERAPY [Suspect]
     Indication: BLADDER CANCER
     Route: 043

REACTIONS (5)
  - Bovine tuberculosis [Recovering/Resolving]
  - Balanoposthitis [Recovering/Resolving]
  - Lymphadenopathy [Recovering/Resolving]
  - Dysuria [Recovering/Resolving]
  - Skin lesion [Recovering/Resolving]
